FAERS Safety Report 5680606-2 (Version None)
Quarter: 2008Q1

REPORT INFORMATION
  Report Type: 
  Country: None (occurrence: None)
  Receive Date: 20080326
  Receipt Date: 20080319
  Transmission Date: 20080703
  Serious: No
  Sender: FDA-Public Use
  Company Number: US-BAXTER-2008BH002207

PATIENT
  Age: 32 Year
  Sex: Female
  Weight: 77 kg

DRUGS (3)
  1. HEPARIN SODIUM [Suspect]
     Indication: THROMBOSIS
     Route: 058
     Dates: start: 20070928, end: 20080310
  2. VITAMIN TAB [Concomitant]
     Indication: DRUG USE FOR UNKNOWN INDICATION
     Dosage: DOSE UNIT:UNKNOWN
     Route: 065
  3. ASPIRIN [Concomitant]
     Indication: CARDIOVASCULAR EVENT PROPHYLAXIS
     Dosage: DOSE UNIT:UNKNOWN
     Route: 065

REACTIONS (9)
  - DIZZINESS [None]
  - DRUG EXPOSURE DURING PREGNANCY [None]
  - DYSPNOEA [None]
  - HEADACHE [None]
  - MUSCLE SPASMS [None]
  - NAUSEA [None]
  - PAIN IN EXTREMITY [None]
  - RESTLESSNESS [None]
  - VOMITING [None]
